FAERS Safety Report 24778110 (Version 2)
Quarter: 2024Q4

REPORT INFORMATION
  Report Type: Report from Study
  Country: US (occurrence: US)
  Receive Date: 20241226
  Receipt Date: 20241231
  Transmission Date: 20250115
  Serious: No
  Sender: PFIZER
  Company Number: US-PFIZER INC-202400331502

PATIENT
  Age: 36 Year
  Sex: Male

DRUGS (1)
  1. LORBRENA [Suspect]
     Active Substance: LORLATINIB
     Dosage: ONE TABLET, EVERY DAY
     Route: 048
     Dates: start: 20241203

REACTIONS (1)
  - Insomnia [Unknown]
